FAERS Safety Report 10492931 (Version 1)
Quarter: 2014Q4

REPORT INFORMATION
  Report Type: Spontaneous
  Country: US (occurrence: US)
  Receive Date: 20141002
  Receipt Date: 20141002
  Transmission Date: 20150528
  Serious: No
  Sender: FDA-Public Use
  Company Number: US-GLAXOSMITHKLINE-A1077114A

PATIENT
  Sex: Female

DRUGS (3)
  1. ADVAIR HFA [Suspect]
     Active Substance: FLUTICASONE PROPIONATE\SALMETEROL XINAFOATE
     Indication: ASTHMA
     Dosage: 1PUFF TWICE PER DAY
     Route: 055
  2. ALBUTEROL INHALER [Concomitant]
     Active Substance: ALBUTEROL
  3. NEBULIZER [Concomitant]
     Active Substance: UNSPECIFIED INGREDIENT

REACTIONS (8)
  - Cough [Unknown]
  - Bronchitis chronic [Unknown]
  - Chronic obstructive pulmonary disease [Unknown]
  - Drug ineffective [Unknown]
  - Overdose [Unknown]
  - Dyspnoea [Recovering/Resolving]
  - Ill-defined disorder [Unknown]
  - Emphysema [Unknown]
